FAERS Safety Report 9246291 (Version 1)
Quarter: 2013Q2

REPORT INFORMATION
  Report Type: Spontaneous
  Country: US (occurrence: US)
  Receive Date: 20130422
  Receipt Date: 20130422
  Transmission Date: 20140414
  Serious: Yes (Other)
  Sender: FDA-Public Use
  Company Number: US-FRI-1000044458

PATIENT
  Sex: Female

DRUGS (2)
  1. BYSTOLIC [Suspect]
  2. BYSTOLIC [Suspect]

REACTIONS (3)
  - Fall [Recovered/Resolved]
  - Balance disorder [Unknown]
  - Normal pressure hydrocephalus [Unknown]
